FAERS Safety Report 8183125-7 (Version None)
Quarter: 2012Q1

REPORT INFORMATION
  Report Type: 
  Country: None (occurrence: None)
  Receive Date: 20120305
  Receipt Date: 20120228
  Transmission Date: 20120608
  Serious: Yes (Other)
  Sender: FDA-Public Use
  Company Number: US-ABBOTT-12P-163-0898500-00

PATIENT
  Sex: Female
  Weight: 86.26 kg

DRUGS (16)
  1. PHENERGAN [Concomitant]
     Indication: NAUSEA
  2. TRAZODONE HCL [Concomitant]
     Indication: INSOMNIA
     Dosage: 100MG DAILY
  3. TOPAMAX [Concomitant]
     Indication: MIGRAINE
  4. FOLIC ACID [Concomitant]
     Indication: PRODUCT USED FOR UNKNOWN INDICATION
     Dosage: 2MG DAILY
  5. MAXALT [Concomitant]
     Indication: MIGRAINE
  6. NEXIUM [Concomitant]
     Indication: GASTROOESOPHAGEAL REFLUX DISEASE
     Dosage: 40MG DAILY
  7. PLAQUENIL [Concomitant]
     Indication: RHEUMATOID ARTHRITIS
  8. SOMA [Concomitant]
     Indication: RHEUMATOID ARTHRITIS
     Dosage: 350MG NIGHTLY
  9. VITAMIN B-12 [Concomitant]
     Indication: PRODUCT USED FOR UNKNOWN INDICATION
  10. HUMIRA [Suspect]
     Dates: start: 20120124
  11. ARTHROTEC [Concomitant]
     Indication: RHEUMATOID ARTHRITIS
  12. LORTAB [Concomitant]
     Indication: RHEUMATOID ARTHRITIS
     Dosage: 10 MG TID PRN
  13. HUMIRA [Suspect]
     Indication: RHEUMATOID ARTHRITIS
     Route: 058
     Dates: end: 20120201
  14. IMITREX [Concomitant]
     Indication: MIGRAINE
  15. AMITRIPTYLINE HCL [Concomitant]
     Indication: MIGRAINE
     Dosage: 50MG DAILY
  16. METHOTREXATE [Concomitant]
     Indication: RHEUMATOID ARTHRITIS
     Dosage: 0.8 MG WEEKLY

REACTIONS (16)
  - ENDOMETRIOSIS [None]
  - ADENOTONSILLECTOMY [None]
  - WISDOM TEETH REMOVAL [None]
  - CHOLECYSTECTOMY [None]
  - DYSMENORRHOEA [None]
  - CHEST DISCOMFORT [None]
  - INFLUENZA LIKE ILLNESS [None]
  - DYSPNOEA [None]
  - PYREXIA [None]
  - NAUSEA [None]
  - NARCOLEPSY [None]
  - TEMPOROMANDIBULAR JOINT SURGERY [None]
  - RHEUMATOID NODULE [None]
  - INJECTION SITE PAIN [None]
  - CENTRAL VENOUS CATHETERISATION [None]
  - CENTRAL VENOUS CATHETER REMOVAL [None]
